FAERS Safety Report 24840516 (Version 1)
Quarter: 2025Q1

REPORT INFORMATION
  Report Type: Spontaneous
  Country: BY (occurrence: BY)
  Receive Date: 20250114
  Receipt Date: 20250114
  Transmission Date: 20250408
  Serious: Yes (Death)
  Sender: JOHNSON AND JOHNSON
  Company Number: BY-JNJFOC-20250133873

PATIENT
  Sex: Male
  Weight: 64 kg

DRUGS (11)
  1. SIRTURO [Suspect]
     Active Substance: BEDAQUILINE FUMARATE
     Indication: Tuberculosis
     Dosage: FOR 2 WEEKS
     Route: 048
     Dates: start: 20230821
  2. SIRTURO [Suspect]
     Active Substance: BEDAQUILINE FUMARATE
     Route: 048
     Dates: end: 20240204
  3. PRETOMANID [Suspect]
     Active Substance: PRETOMANID
     Indication: Tuberculosis
     Route: 048
     Dates: start: 20230821, end: 20240204
  4. LINEZOLID [Suspect]
     Active Substance: LINEZOLID
     Indication: Tuberculosis
     Dosage: FOR 112 DOSES
     Route: 048
     Dates: start: 20230821
  5. LINEZOLID [Suspect]
     Active Substance: LINEZOLID
     Route: 048
     Dates: end: 20240204
  6. CLOFAZIMINE [Suspect]
     Active Substance: CLOFAZIMINE
     Indication: Tuberculosis
     Route: 048
     Dates: start: 20230821, end: 20240204
  7. BISOPROLOL [Concomitant]
     Active Substance: BISOPROLOL
  8. RAMIPRIL [Concomitant]
     Active Substance: RAMIPRIL
  9. AMIODARONE [Concomitant]
     Active Substance: AMIODARONE
  10. RIVAROXABAN [Concomitant]
     Active Substance: RIVAROXABAN
  11. ATORVASTATIN [Concomitant]
     Active Substance: ATORVASTATIN

REACTIONS (1)
  - Myocardial ischaemia [Fatal]
